FAERS Safety Report 8845050 (Version 2)
Quarter: 2012Q4

REPORT INFORMATION
  Report Type: 
  Country: US (occurrence: US)
  Receive Date: 20121017
  Receipt Date: 20121205
  Transmission Date: 20130627
  Serious: Yes (Hospitalization)
  Sender: FDA-Public Use
  Company Number: US-UCBSA-068630

PATIENT
  Age: 56 Year
  Sex: Female

DRUGS (4)
  1. CERTOLIZUMAB PEGOL [Suspect]
     Indication: CROHN^S DISEASE
     Dates: start: 2010
  2. CERTOLIZUMAB PEGOL [Suspect]
     Indication: CROHN^S DISEASE
     Dosage: BOOSTED AND SPLIT
  3. B12 [Concomitant]
  4. VITAMIN D [Concomitant]

REACTIONS (1)
  - Hyperlipasaemia [Recovered/Resolved]
